FAERS Safety Report 21419083 (Version 1)
Quarter: 2022Q4

REPORT INFORMATION
  Report Type: Spontaneous
  Country: CA (occurrence: CA)
  Receive Date: 20221006
  Receipt Date: 20221006
  Transmission Date: 20230113
  Serious: Yes (Other)
  Sender: FDA-Public Use
  Company Number: CA-PFIZER INC-202201201516

PATIENT
  Age: 15 Year
  Sex: Male

DRUGS (6)
  1. METHOTREXATE SODIUM [Suspect]
     Active Substance: METHOTREXATE SODIUM
     Dosage: PROGRESSIVE DOSE 20 PER OS
     Route: 048
  2. METHOTREXATE SODIUM [Suspect]
     Active Substance: METHOTREXATE SODIUM
     Dosage: 25 PER OS
     Route: 048
  3. PREDNISONE [Concomitant]
     Active Substance: PREDNISONE
     Dosage: DOSE + FREQUENCY UNSPECIFIED
  4. HUMIRA [Concomitant]
     Active Substance: ADALIMUMAB
     Dosage: DOSE + FREQUENCY UNSPECIFIED
  5. VANCOMYCIN [Concomitant]
     Active Substance: VANCOMYCIN
     Dosage: DOSE + FREQUENCY UNSPECIFIED
  6. MESALAMINE [Concomitant]
     Active Substance: MESALAMINE
     Dosage: DOSE + FREQUENCY UNSPECIFIED

REACTIONS (2)
  - Illness [Unknown]
  - Nausea [Unknown]
